FAERS Safety Report 21128463 (Version 3)
Quarter: 2025Q3

REPORT INFORMATION
  Report Type: Spontaneous
  Country: CA (occurrence: CA)
  Receive Date: 20220725
  Receipt Date: 20250710
  Transmission Date: 20251020
  Serious: Yes (Hospitalization, Other)
  Sender: JAZZ
  Company Number: CA-JAZZ-2022-CA-024172

PATIENT
  Age: 44 Year
  Sex: Male

DRUGS (11)
  1. EPIDIOLEX [Suspect]
     Active Substance: CANNABIDIOL
     Indication: Pain
     Route: 065
  2. AMITRIPTYLINE [Suspect]
     Active Substance: AMITRIPTYLINE
     Indication: Pain
     Route: 065
  3. KETAMINE [Suspect]
     Active Substance: KETAMINE
     Indication: Pain
     Route: 042
  4. LIDOCAINE [Suspect]
     Active Substance: LIDOCAINE
     Indication: Analgesic therapy
     Route: 065
  5. MAGNESIUM SULFATE [Suspect]
     Active Substance: MAGNESIUM SULFATE
     Indication: Analgesic therapy
     Route: 065
  6. TEMAZEPAM [Suspect]
     Active Substance: TEMAZEPAM
     Indication: Pain
     Route: 065
  7. DULOXETINE HYDROCHLORIDE [Suspect]
     Active Substance: DULOXETINE HYDROCHLORIDE
     Indication: Pain
     Route: 065
  8. ZOPICLONE [Suspect]
     Active Substance: ZOPICLONE
     Indication: Pain
     Route: 065
  9. DEXAMETHASONE [Suspect]
     Active Substance: DEXAMETHASONE
     Indication: Prophylaxis
     Dosage: UNK, QD, 1 EVERY 1 DAYS
     Route: 042
  10. MIDAZOLAM HYDROCHLORIDE [Suspect]
     Active Substance: MIDAZOLAM HYDROCHLORIDE
     Indication: Prophylaxis
     Route: 042
  11. ONDANSETRON [Suspect]
     Active Substance: ONDANSETRON
     Indication: Prophylaxis

REACTIONS (2)
  - Behaviour disorder [Recovered/Resolved]
  - Off label use [Unknown]
